FAERS Safety Report 26073071 (Version 1)
Quarter: 2025Q4

REPORT INFORMATION
  Report Type: Spontaneous
  Country: SY (occurrence: SY)
  Receive Date: 20251121
  Receipt Date: 20251121
  Transmission Date: 20260117
  Serious: Yes (Hospitalization, Other)
  Sender: OXFORD PHARMACEUTICALS, LLC
  Company Number: SY-Oxford Pharmaceuticals, LLC-2189041

PATIENT
  Age: 40 Year
  Sex: Male

DRUGS (2)
  1. AMLODIPINE BESYLATE [Suspect]
     Active Substance: AMLODIPINE BESYLATE
     Indication: Hypertension
  2. VALSARTAN [Suspect]
     Active Substance: VALSARTAN

REACTIONS (1)
  - Non-cardiogenic pulmonary oedema [Recovered/Resolved]
